FAERS Safety Report 9165837 (Version 2)
Quarter: 2013Q2

REPORT INFORMATION
  Report Type: Spontaneous
  Country: BE (occurrence: BE)
  Receive Date: 20130315
  Receipt Date: 20130418
  Transmission Date: 20140414
  Serious: Yes (Death, Hospitalization, Other)
  Sender: FDA-Public Use
  Company Number: PHHY2013BE024943

PATIENT
  Age: 65 Year
  Sex: Female

DRUGS (2)
  1. LORAZEPAM [Suspect]
     Dosage: 40 MG, UNK
  2. VENLAFAXINE [Suspect]
     Dosage: 7000 MG, UNK

REACTIONS (5)
  - Cardiogenic shock [Fatal]
  - Blood pressure decreased [Fatal]
  - Cardiac output decreased [Fatal]
  - Coma [Unknown]
  - Overdose [Unknown]
